FAERS Safety Report 7354329-8 (Version None)
Quarter: 2011Q1

REPORT INFORMATION
  Report Type: 
  Country: None (occurrence: None)
  Receive Date: 20110316
  Receipt Date: 20110311
  Transmission Date: 20110831
  Serious: Yes (Hospitalization, Other)
  Sender: FDA-Public Use
  Company Number: CA-TEVA-271076USA

PATIENT
  Age: 21 Year
  Sex: Female

DRUGS (1)
  1. SEASONALE [Suspect]
     Indication: ORAL CONTRACEPTION
     Dosage: 0.15MG/0.03MG
     Route: 048
     Dates: start: 20110227, end: 20110305

REACTIONS (6)
  - CONFUSIONAL STATE [None]
  - MUSCLE TWITCHING [None]
  - NAUSEA [None]
  - HEADACHE [None]
  - SYNCOPE [None]
  - DISORIENTATION [None]
